FAERS Safety Report 21027697 (Version 1)
Quarter: 2022Q2

REPORT INFORMATION
  Report Type: Spontaneous
  Country: US (occurrence: None)
  Receive Date: 20220630
  Receipt Date: 20220630
  Transmission Date: 20220720
  Serious: Yes (Hospitalization)
  Sender: FDA-Public Use
  Company Number: None

PATIENT
  Age: 62 Year
  Sex: Female
  Weight: 88.1 kg

DRUGS (2)
  1. ERBITUX [Suspect]
     Active Substance: CETUXIMAB
  2. TAXOTERE [Suspect]
     Active Substance: DOCETAXEL
     Dates: end: 20220602

REACTIONS (5)
  - Dyspnoea [None]
  - Mucosal inflammation [None]
  - Orthopnoea [None]
  - Dysphagia [None]
  - Stomatitis [None]

NARRATIVE: CASE EVENT DATE: 20220607
